FAERS Safety Report 13430097 (Version 2)
Quarter: 2017Q2

REPORT INFORMATION
  Report Type: Report from Study
  Country: JP (occurrence: JP)
  Receive Date: 20170412
  Receipt Date: 20170421
  Transmission Date: 20170830
  Serious: Yes (Hospitalization)
  Sender: FDA-Public Use
  Company Number: JP-AMGEN-JPNCT2017055621

PATIENT
  Age: 76 Year
  Sex: Male
  Weight: 64 kg

DRUGS (22)
  1. AIMIX [Concomitant]
     Active Substance: AMLODIPINE BESYLATE\IRBESARTAN
     Indication: HYPERTENSION
     Dosage: 1 DF, QD
     Route: 048
  2. FEBURIC [Concomitant]
     Active Substance: FEBUXOSTAT
     Dosage: 20 MG, QD
     Route: 048
  3. FUROSEMIDE. [Concomitant]
     Active Substance: FUROSEMIDE
     Indication: CHRONIC KIDNEY DISEASE
     Dosage: 40 MG, BID
     Route: 041
     Dates: start: 20170325, end: 20170403
  4. NICORANDIL [Concomitant]
     Active Substance: NICORANDIL
     Indication: MYOCARDIAL INFARCTION
     Dosage: 48 MG, QD
     Route: 041
     Dates: start: 20170322, end: 20170403
  5. DIART [Concomitant]
     Active Substance: AZOSEMIDE
     Indication: CHRONIC KIDNEY DISEASE
     Dosage: 60 MG, QD
     Route: 048
  6. TANKARU [Concomitant]
     Indication: CHRONIC KIDNEY DISEASE
  7. FEBURIC [Concomitant]
     Active Substance: FEBUXOSTAT
     Indication: HYPERURICAEMIA
     Dosage: 20 MG, QD
     Route: 048
     Dates: start: 20170403
  8. SELBEX [Concomitant]
     Active Substance: TEPRENONE
     Indication: GASTRITIS PROPHYLAXIS
     Dosage: 50 MG, QD
     Route: 048
  9. WYTENS [Concomitant]
     Active Substance: GUANABENZ ACETATE
     Indication: HYPERTENSION
     Dosage: 4 MG, BID
     Route: 048
  10. AMITIZA [Concomitant]
     Active Substance: LUBIPROSTONE
     Indication: CHRONIC KIDNEY DISEASE
  11. DIART [Concomitant]
     Active Substance: AZOSEMIDE
     Indication: CHRONIC KIDNEY DISEASE
     Dosage: 60 MG, QD
     Route: 048
     Dates: start: 20170403
  12. SELBEX [Concomitant]
     Active Substance: TEPRENONE
     Dosage: 50 MG, TID
     Route: 048
     Dates: start: 20170403
  13. LASIX [Concomitant]
     Active Substance: FUROSEMIDE
     Indication: CHRONIC KIDNEY DISEASE
     Dosage: 80 MG, BID
     Route: 048
  14. AMITIZA [Concomitant]
     Active Substance: LUBIPROSTONE
     Indication: CHRONIC KIDNEY DISEASE
     Dosage: 24 MUG, BID
     Route: 048
  15. FUROSEMIDE. [Concomitant]
     Active Substance: FUROSEMIDE
     Indication: CHRONIC KIDNEY DISEASE
  16. DARBEPOETIN ALFA [Suspect]
     Active Substance: DARBEPOETIN ALFA
     Indication: PRODUCT USED FOR UNKNOWN INDICATION
     Dosage: 60 MUG, UNK
     Route: 065
     Dates: start: 20160822
  17. ARTIST [Concomitant]
     Active Substance: CARVEDILOL
     Indication: HYPERTENSION
     Dosage: 10 MG, BID
     Route: 048
  18. LASIX [Concomitant]
     Active Substance: FUROSEMIDE
     Indication: CHRONIC KIDNEY DISEASE
     Dosage: 40 MG, UNK
     Route: 048
  19. LASIX [Concomitant]
     Active Substance: FUROSEMIDE
     Dosage: 40 MG, BID
     Route: 048
     Dates: start: 20170403
  20. TANKARU [Concomitant]
     Indication: CHRONIC KIDNEY DISEASE
     Dosage: 1 G, TID
     Route: 048
  21. ALOSENN [Concomitant]
     Active Substance: SENNA LEAF
     Indication: CONSTIPATION
     Dosage: 0.5 G, QD
     Route: 048
  22. TAKEPRON [Concomitant]
     Active Substance: LANSOPRAZOLE
     Indication: DUODENAL ULCER
     Dosage: 30 MG, BID
     Route: 041
     Dates: start: 20170322, end: 20170403

REACTIONS (3)
  - Myocardial infarction [Recovering/Resolving]
  - Duodenal ulcer [Recovering/Resolving]
  - Pneumonia [Recovered/Resolved]

NARRATIVE: CASE EVENT DATE: 20170321
